FAERS Safety Report 6962064-0 (Version None)
Quarter: 2010Q3

REPORT INFORMATION
  Report Type: 
  Country: None (occurrence: None)
  Receive Date: 20100901
  Receipt Date: 20100901
  Transmission Date: 20110219
  Serious: Yes (Hospitalization)
  Sender: FDA-Public Use
  Company Number: None

PATIENT
  Sex: Female
  Weight: 79.1 kg

DRUGS (7)
  1. AVASTIN [Suspect]
     Indication: FEBRILE NEUTROPENIA
     Dates: start: 20100714, end: 20100714
  2. AVASTIN [Suspect]
     Indication: FEBRILE NEUTROPENIA
     Dates: start: 20100630, end: 20100728
  3. AVASTIN [Suspect]
     Indication: FEBRILE NEUTROPENIA
     Dates: start: 20100729, end: 20100731
  4. ZOSYN [Concomitant]
  5. VANCOMYCIN [Concomitant]
  6. ATENOLOL [Concomitant]
  7. COMPAZINE [Concomitant]

REACTIONS (2)
  - NEUTROPHIL COUNT DECREASED [None]
  - PYREXIA [None]
